FAERS Safety Report 6927595-8 (Version None)
Quarter: 2010Q3

REPORT INFORMATION
  Report Type: 
  Country: None (occurrence: None)
  Receive Date: 20100817
  Receipt Date: 20100802
  Transmission Date: 20110219
  Serious: Yes (Death, Life-Threatening)
  Sender: FDA-Public Use
  Company Number: US-SANOFI-AVENTIS-2010SA046532

PATIENT
  Age: 58 Year
  Sex: Male

DRUGS (2)
  1. DESIPRAMINE HYDROCHLORIDE [Suspect]
     Indication: INTENTIONAL OVERDOSE
     Route: 048
  2. ALL OTHER THERAPEUTIC PRODUCTS [Suspect]
     Route: 065

REACTIONS (4)
  - BRAIN INJURY [None]
  - ELECTROCARDIOGRAM ABNORMAL [None]
  - INTENTIONAL OVERDOSE [None]
  - MYOCLONIC EPILEPSY [None]
